FAERS Safety Report 6249671-8 (Version None)
Quarter: 2009Q2

REPORT INFORMATION
  Report Type: 
  Country: None (occurrence: None)
  Receive Date: 20090629
  Receipt Date: 20090623
  Transmission Date: 20091009
  Serious: Yes (Life-Threatening)
  Sender: FDA-Public Use
  Company Number: JP-ABBOTT-09P-087-0574802-00

PATIENT
  Sex: Female
  Weight: 30 kg

DRUGS (5)
  1. CLARITHROMYCIN [Suspect]
     Indication: NASOPHARYNGITIS
     Route: 048
     Dates: start: 20090427, end: 20090501
  2. PL GRANULE (NON-PYRINE COLD PREPARATION) [Suspect]
     Indication: NASOPHARYNGITIS
     Route: 048
     Dates: start: 20090427, end: 20090501
  3. TRANSAMIN [Suspect]
     Indication: NASOPHARYNGITIS
     Route: 048
     Dates: start: 20090427, end: 20090501
  4. ADALAT CC [Concomitant]
     Indication: DRUG USE FOR UNKNOWN INDICATION
     Route: 048
  5. NU-LOTAN [Concomitant]
     Indication: DRUG USE FOR UNKNOWN INDICATION
     Route: 048

REACTIONS (2)
  - GRANULOCYTOPENIA [None]
  - INTERSTITIAL LUNG DISEASE [None]
